FAERS Safety Report 7333309-2 (Version None)
Quarter: 2011Q1

REPORT INFORMATION
  Report Type: 
  Country: None (occurrence: None)
  Receive Date: 20110304
  Receipt Date: 20110228
  Transmission Date: 20110831
  Serious: Yes (Life-Threatening, Hospitalization)
  Sender: FDA-Public Use
  Company Number: JP-EISAI INC-E2090-01493-SPO-JP

PATIENT
  Sex: Male

DRUGS (1)
  1. EXCEGRAN [Suspect]
     Route: 048
     Dates: start: 20110126, end: 20110215

REACTIONS (1)
  - STEVENS-JOHNSON SYNDROME [None]
